FAERS Safety Report 23309098 (Version 1)
Quarter: 2023Q4

REPORT INFORMATION
  Report Type: Spontaneous
  Country: GB (occurrence: GB)
  Receive Date: 20231218
  Receipt Date: 20231218
  Transmission Date: 20240110
  Serious: Yes (Other)
  Sender: FDA-Public Use
  Company Number: None

PATIENT
  Age: 61 Year
  Sex: Female
  Weight: 74 kg

DRUGS (4)
  1. EMPAGLIFLOZIN [Suspect]
     Active Substance: EMPAGLIFLOZIN
     Indication: Type 2 diabetes mellitus
     Dates: start: 20200102
  2. VICTOZA [Concomitant]
     Active Substance: LIRAGLUTIDE
     Indication: Adverse drug reaction
     Dates: start: 20220101
  3. GLICLAZIDE [Concomitant]
     Active Substance: GLICLAZIDE
     Indication: Adverse drug reaction
  4. METFORMIN [Concomitant]
     Active Substance: METFORMIN HYDROCHLORIDE
     Indication: Adverse drug reaction
     Dates: start: 20170101

REACTIONS (1)
  - Candida infection [Not Recovered/Not Resolved]

NARRATIVE: CASE EVENT DATE: 20200802
